FAERS Safety Report 7130771-5 (Version None)
Quarter: 2010Q4

REPORT INFORMATION
  Report Type: 
  Country: None (occurrence: None)
  Receive Date: 20101201
  Receipt Date: 20101117
  Transmission Date: 20110411
  Serious: Yes (Other)
  Sender: FDA-Public Use
  Company Number: PHHY2010JP33067

PATIENT
  Sex: Male

DRUGS (11)
  1. AFINITOR [Suspect]
     Indication: METASTATIC RENAL CELL CARCINOMA
     Dosage: 10 UNK, UNK
     Route: 048
     Dates: start: 20100422, end: 20100429
  2. AFINITOR [Suspect]
     Dosage: 5 MG
     Route: 048
     Dates: start: 20100514, end: 20100716
  3. AFINITOR [Suspect]
     Dosage: 5 MG
     Route: 048
     Dates: start: 20100722, end: 20100916
  4. AFINITOR [Suspect]
     Dosage: 5 MG
     Dates: start: 20100930, end: 20101028
  5. SUNITINIB MALATE [Concomitant]
     Indication: METASTATIC RENAL CELL CARCINOMA
     Dosage: 50 MG
     Route: 048
     Dates: start: 20091015, end: 20100107
  6. BLOPRESS [Concomitant]
     Indication: METASTATIC RENAL CELL CARCINOMA
     Dosage: 8 MG
     Route: 048
  7. DOXAZOSIN MESYLATE [Concomitant]
     Indication: METASTATIC RENAL CELL CARCINOMA
     Dosage: 1 MG
     Route: 048
     Dates: end: 20100507
  8. THYRADIN [Concomitant]
     Indication: METASTATIC RENAL CELL CARCINOMA
     Dosage: 50
     Route: 048
  9. AMLODIPINE [Concomitant]
     Indication: METASTATIC RENAL CELL CARCINOMA
     Dosage: 5 MG
  10. ZYLORIC [Concomitant]
     Indication: METASTATIC RENAL CELL CARCINOMA
     Dosage: 100 MG
     Route: 048
  11. GASTER D [Concomitant]
     Dosage: 20 MG, UNK
     Route: 048
     Dates: start: 20100521

REACTIONS (3)
  - GAMMA-GLUTAMYLTRANSFERASE INCREASED [None]
  - PLATELET COUNT DECREASED [None]
  - WHITE BLOOD CELL COUNT DECREASED [None]
